FAERS Safety Report 5115183-8 (Version None)
Quarter: 2006Q3

REPORT INFORMATION
  Report Type: 
  Country: None (occurrence: None)
  Receive Date: 20060922
  Receipt Date: 20060911
  Transmission Date: 20061208
  Serious: Yes (Other)
  Sender: FDA-Public Use
  Company Number: 2006070646

PATIENT
  Sex: Male

DRUGS (1)
  1. LIPITOR [Suspect]

REACTIONS (4)
  - BLOOD CHLORIDE ABNORMAL [None]
  - BLOOD CHOLESTEROL ABNORMAL [None]
  - RENAL IMPAIRMENT [None]
  - RHABDOMYOLYSIS [None]
